FAERS Safety Report 8619140-6 (Version None)
Quarter: 2012Q3

REPORT INFORMATION
  Report Type: 
  Country: None (occurrence: None)
  Receive Date: 20120824
  Receipt Date: 20120820
  Transmission Date: 20120928
  Serious: Yes (Life-Threatening)
  Sender: FDA-Public Use
  Company Number: FR-SANOFI-AVENTIS-2012SA059607

PATIENT
  Age: 78 Year
  Sex: Male

DRUGS (1)
  1. LOVENOX [Suspect]
     Dates: start: 20120703, end: 20120717

REACTIONS (3)
  - HEPARIN-INDUCED THROMBOCYTOPENIA [None]
  - TONIC CLONIC MOVEMENTS [None]
  - CARDIO-RESPIRATORY ARREST [None]
